FAERS Safety Report 7474940-3 (Version None)
Quarter: 2011Q2

REPORT INFORMATION
  Report Type: 
  Country: None (occurrence: None)
  Receive Date: 20110505
  Receipt Date: 20110421
  Transmission Date: 20111010
  Serious: Yes (Hospitalization)
  Sender: FDA-Public Use
  Company Number: 2011AP000810

PATIENT
  Age: 50 Year
  Sex: Female

DRUGS (4)
  1. POTASSIUM HYDROCHLORIDE (POTASSIUM HYDROCHLORIDE) [Concomitant]
  2. FUROSEMIDE [Concomitant]
  3. SERTRALINE HYDROCHLORIDE [Suspect]
     Indication: PRODUCT USED FOR UNKNOWN INDICATION
  4. FLECAINIDE ACETATE [Concomitant]

REACTIONS (4)
  - HAEMORRHAGE [None]
  - DEEP VEIN THROMBOSIS [None]
  - THERAPEUTIC RESPONSE INCREASED [None]
  - DRUG INTERACTION [None]
